FAERS Safety Report 4579272-9 (Version None)
Quarter: 2005Q1

REPORT INFORMATION
  Report Type: 
  Country: None (occurrence: None)
  Receive Date: 20050210
  Receipt Date: 20050210
  Transmission Date: 20050727
  Serious: No
  Sender: FDA-Public Use
  Company Number: None

PATIENT
  Sex: Male
  Weight: 84 kg

DRUGS (2)
  1. CARBOPLATIN [Suspect]
     Dosage: 490 MG IV VERY 3 WEEKS
     Route: 042
     Dates: start: 20041115
  2. ETOPOSIDE [Suspect]
     Dosage: 205 MG IV DAYS 1-3 EVERY 3 WEEKS
     Route: 042

REACTIONS (2)
  - ANAEMIA HAEMOLYTIC AUTOIMMUNE [None]
  - PANCYTOPENIA [None]
